FAERS Safety Report 5803737-2 (Version None)
Quarter: 2008Q3

REPORT INFORMATION
  Report Type: 
  Country: None (occurrence: None)
  Receive Date: 20080708
  Receipt Date: 20071218
  Transmission Date: 20090109
  Serious: No
  Sender: FDA-Public Use
  Company Number: US-AMGEN-KDL255798

PATIENT
  Sex: Female
  Weight: 58.1 kg

DRUGS (3)
  1. KINERET [Suspect]
     Indication: RHEUMATOID ARTHRITIS
     Route: 058
     Dates: start: 20070208, end: 20071211
  2. METROGEL [Concomitant]
     Dates: start: 20071010
  3. FERROUS SULFATE TAB [Concomitant]
     Dates: start: 20071016

REACTIONS (6)
  - HAEMATOCRIT DECREASED [None]
  - HAEMOGLOBIN DECREASED [None]
  - LEUKOPENIA [None]
  - MEAN CELL VOLUME DECREASED [None]
  - MENORRHAGIA [None]
  - NAUSEA [None]
